FAERS Safety Report 9722935 (Version 1)
Quarter: 2013Q4

REPORT INFORMATION
  Report Type: Report from Study
  Country: EC (occurrence: EC)
  Receive Date: 20131202
  Receipt Date: 20131202
  Transmission Date: 20140711
  Serious: Yes (Other)
  Sender: FDA-Public Use
  Company Number: PHHY2013EC139633

PATIENT
  Sex: Female

DRUGS (2)
  1. DIOVAN HCT [Suspect]
     Indication: HYPERTENSION
     Dosage: 1 DF (80/12.5), QD
     Route: 048
     Dates: start: 201309
  2. ALBENDAZOLE [Suspect]
     Indication: INFECTION PARASITIC
     Dosage: UNK UKN, UNK
     Dates: start: 20131127

REACTIONS (2)
  - Eye discharge [Not Recovered/Not Resolved]
  - Periorbital oedema [Not Recovered/Not Resolved]
